FAERS Safety Report 25390736 (Version 1)
Quarter: 2025Q2

REPORT INFORMATION
  Report Type: Spontaneous
  Country: CA (occurrence: None)
  Receive Date: 20250603
  Receipt Date: 20250603
  Transmission Date: 20250716
  Serious: Yes (Disabling)
  Sender: FDA-CTU
  Company Number: None

PATIENT
  Age: 38 Year
  Sex: Male
  Weight: 76.5 kg

DRUGS (2)
  1. VENLAFAXINE [Suspect]
     Active Substance: VENLAFAXINE HYDROCHLORIDE
     Indication: Anxiety
     Dates: start: 20170601, end: 20210930
  2. BENADRYL [Concomitant]
     Active Substance: DIPHENHYDRAMINE HYDROCHLORIDE

REACTIONS (8)
  - Sleep disorder [None]
  - Stress [None]
  - Night sweats [None]
  - Impaired work ability [None]
  - Mood swings [None]
  - Depressed mood [None]
  - Impaired quality of life [None]
  - Withdrawal syndrome [None]

NARRATIVE: CASE EVENT DATE: 20250603
